FAERS Safety Report 4711196-6 (Version None)
Quarter: 2005Q3

REPORT INFORMATION
  Report Type: 
  Country: None (occurrence: None)
  Receive Date: 20050708
  Receipt Date: 20050627
  Transmission Date: 20060218
  Serious: Yes (Life-Threatening)
  Sender: FDA-Public Use
  Company Number: GB-2005-010281

PATIENT
  Age: 41 Year
  Sex: Female
  Weight: 85.3 kg

DRUGS (3)
  1. MIRENA [Suspect]
     Indication: MENORRHAGIA
     Dosage: 20 MICROGRAM/DAY, CONT, INTRA-UTERINE
     Route: 015
     Dates: start: 20030808, end: 20050602
  2. DICLOFENAC SODIUM [Concomitant]
  3. METHOTREXATE [Concomitant]

REACTIONS (1)
  - BREAST CANCER FEMALE [None]
